FAERS Safety Report 9114659 (Version 1)
Quarter: 2013Q1

REPORT INFORMATION
  Report Type: Spontaneous
  Country: TH (occurrence: None)
  Receive Date: 20130128
  Receipt Date: 20130128
  Transmission Date: 20140127
  Serious: Yes (Hospitalization, Other)
  Sender: FDA-Public Use
  Company Number: NSR_00790_2013

PATIENT
  Age: 42 Year
  Sex: Male

DRUGS (3)
  1. ATENOLOL (ATENOLOL) [Suspect]
     Indication: PRODUCT USED FOR UNKNOWN INDICATION
     Dosage: (50 MG,  DAILY)?(1 YEAR  UNTIL  NOT  CONTINUING)
  2. ENALAPRIL [Concomitant]
  3. CHLORHEXIDINE [Concomitant]

REACTIONS (7)
  - Gingivitis [None]
  - Gingival erythema [None]
  - Oral mucosal exfoliation [None]
  - Mouth ulceration [None]
  - Oral pain [None]
  - Drug hypersensitivity [None]
  - Pemphigoid [None]
